FAERS Safety Report 8992205 (Version 1)
Quarter: 2012Q4

REPORT INFORMATION
  Report Type: 
  Country: US (occurrence: US)
  Receive Date: 20121231
  Receipt Date: 20121231
  Transmission Date: 20130627
  Serious: No
  Sender: FDA-Public Use
  Company Number: US-009507513-1212USA009883

PATIENT
  Age: 72 Year
  Sex: Female

DRUGS (4)
  1. JANUMET [Suspect]
     Indication: DIABETES MELLITUS
     Dosage: 50/1000 mg, bid
     Route: 048
     Dates: start: 201205
  2. GLYBURIDE [Concomitant]
  3. LISINOPRIL [Concomitant]
  4. TAMOXIFEN CITRATE [Concomitant]

REACTIONS (3)
  - Blood glucose increased [Recovering/Resolving]
  - Product quality issue [Unknown]
  - Drug dose omission [Unknown]
